FAERS Safety Report 7149450-3 (Version None)
Quarter: 2010Q4

REPORT INFORMATION
  Report Type: 
  Country: None (occurrence: None)
  Receive Date: 20101209
  Receipt Date: 20101123
  Transmission Date: 20110411
  Serious: No
  Sender: FDA-Public Use
  Company Number: US-PFIZER INC-2010158314

PATIENT

DRUGS (1)
  1. ALAVERT [Suspect]

REACTIONS (1)
  - CONSTIPATION [None]
